FAERS Safety Report 16001852 (Version 2)
Quarter: 2019Q1

REPORT INFORMATION
  Report Type: Spontaneous
  Country: FR (occurrence: FR)
  Receive Date: 20190225
  Receipt Date: 20190321
  Transmission Date: 20190418
  Serious: Yes (Hospitalization)
  Sender: FDA-Public Use
  Company Number: FR-PFIZER INC-2019075064

PATIENT
  Age: 39 Year
  Sex: Female
  Weight: 76 kg

DRUGS (7)
  1. KETOPROFEN. [Suspect]
     Active Substance: KETOPROFEN
     Indication: BACK PAIN
     Dosage: UNK
     Route: 048
     Dates: start: 20161007, end: 20161010
  2. CAFFEINE CITRATE/CODEINE PHOSPHATE/PARACETAMOL [Suspect]
     Active Substance: ACETAMINOPHEN\CAFFEINE\CODEINE PHOSPHATE
     Indication: BACK PAIN
     Dosage: UNK
     Route: 048
     Dates: start: 20161007, end: 20161010
  3. PANTOPRAZOLE [Suspect]
     Active Substance: PANTOPRAZOLE
     Indication: GASTROOESOPHAGEAL REFLUX PROPHYLAXIS
     Dosage: UNK
     Route: 048
     Dates: start: 20161007, end: 20161010
  4. CLARADOL [Suspect]
     Active Substance: ACETAMINOPHEN
     Indication: BACK PAIN
     Dosage: UNK
     Route: 048
     Dates: start: 20161007, end: 20161010
  5. SOLUPRED [PREDNISOLONE METASULFOBENZOATE SODIUM] [Concomitant]
     Active Substance: PREDNISOLONE SODIUM METAZOATE
     Dosage: UNK
  6. ALPRAZOLAM. [Suspect]
     Active Substance: ALPRAZOLAM
     Indication: ANXIETY
     Dosage: UNK
     Route: 048
     Dates: start: 20161007, end: 20161010
  7. ALTIM [CORTIVAZOL] [Suspect]
     Active Substance: CORTIVAZOL
     Indication: BACK PAIN
     Dosage: 3.75/1.5 MG/ML,UNK
     Route: 051
     Dates: start: 20161006, end: 20161006

REACTIONS (2)
  - Rash maculo-papular [Recovered/Resolved]
  - Eosinophilia [Recovered/Resolved]

NARRATIVE: CASE EVENT DATE: 20161008
